FAERS Safety Report 24610896 (Version 2)
Quarter: 2024Q4

REPORT INFORMATION
  Report Type: Report from Study
  Country: US (occurrence: US)
  Receive Date: 20241112
  Receipt Date: 20241127
  Transmission Date: 20250114
  Serious: Yes (Hospitalization, Other)
  Sender: UCB
  Company Number: US-UCBSA-2024057759

PATIENT
  Sex: Female

DRUGS (1)
  1. LEVETIRACETAM [Suspect]
     Active Substance: LEVETIRACETAM
     Indication: Seizure
     Dosage: 500 MILLIGRAM, 2X/DAY (BID)
     Route: 048
     Dates: end: 20240311

REACTIONS (4)
  - Seizure [Recovered/Resolved]
  - Irritability [Unknown]
  - Fall [Unknown]
  - Balance disorder [Unknown]
